FAERS Safety Report 10154626 (Version 1)
Quarter: 2014Q2

REPORT INFORMATION
  Report Type: Report from Study
  Country: US (occurrence: US)
  Receive Date: 20140506
  Receipt Date: 20140506
  Transmission Date: 20141212
  Serious: Yes (Other)
  Sender: FDA-Public Use
  Company Number: US-ROCHE-1394876

PATIENT
  Sex: Male
  Weight: 46.8 kg

DRUGS (4)
  1. NUTROPIN AQ [Suspect]
     Indication: BODY HEIGHT BELOW NORMAL
     Dosage: DOSE: 1.6 MG ALTERNATING WITH 1.8 MG
     Route: 058
     Dates: end: 201402
  2. NUTROPIN AQ [Suspect]
     Route: 058
     Dates: start: 201402
  3. VITAMIN D3 [Concomitant]
  4. LAMICTAL [Concomitant]
     Route: 048

REACTIONS (4)
  - Insulin-like growth factor increased [Unknown]
  - Affective disorder [Unknown]
  - Snoring [Unknown]
  - Drug dose omission [Unknown]
